FAERS Safety Report 5609431-5 (Version None)
Quarter: 2008Q1

REPORT INFORMATION
  Report Type: 
  Country: None (occurrence: None)
  Receive Date: 20080131
  Receipt Date: 20080129
  Transmission Date: 20080703
  Serious: Yes (Other)
  Sender: FDA-Public Use
  Company Number: US-SANOFI-SYNTHELABO-A03200706534

PATIENT
  Sex: Male
  Weight: 68 kg

DRUGS (11)
  1. SIMVASTATIN [Concomitant]
     Indication: DRUG USE FOR UNKNOWN INDICATION
     Route: 048
  2. LASIX [Concomitant]
     Indication: HYPERTENSION
     Dosage: 40 TO 80 MG
     Route: 065
  3. FOSINOPRIL SODIUM [Concomitant]
     Indication: HYPERTENSION
     Route: 065
     Dates: end: 20071101
  4. PLAVIX [Suspect]
     Indication: STENT PLACEMENT
     Route: 048
     Dates: start: 20040901, end: 20070501
  5. PLAVIX [Suspect]
     Indication: HYPERTENSION
     Route: 048
     Dates: start: 20040901, end: 20070501
  6. PLAVIX [Suspect]
     Route: 048
     Dates: start: 20070101, end: 20070101
  7. PLAVIX [Suspect]
     Route: 048
     Dates: start: 20070101, end: 20070101
  8. VITAMIN B-12 [Concomitant]
     Indication: MEMORY IMPAIRMENT
     Route: 065
  9. ASPIRIN [Concomitant]
     Indication: HYPERTENSION
     Route: 065
  10. HYTRIN [Concomitant]
     Indication: BENIGN PROSTATIC HYPERPLASIA
     Route: 065
     Dates: end: 20070501
  11. SULAR [Concomitant]
     Indication: HYPERTENSION
     Route: 065
     Dates: end: 20071101

REACTIONS (1)
  - HAEMORRHAGE URINARY TRACT [None]
